FAERS Safety Report 7707033-8 (Version None)
Quarter: 2011Q3

REPORT INFORMATION
  Report Type: 
  Country: None (occurrence: None)
  Receive Date: 20110818
  Receipt Date: 20110802
  Transmission Date: 20111222
  Serious: Yes (Hospitalization)
  Sender: FDA-Public Use
  Company Number: DSA_47375_2011

PATIENT
  Age: 53 Year
  Sex: Male

DRUGS (2)
  1. LABETALOL (LABETALOL) 90 MG [Suspect]
     Indication: HYPERTENSION
     Dosage: (90 MG TOTAL INTRAVENOUS (NOT OTHERWISE SPECIFIED)
     Route: 042
  2. ENALAPRILAT (ENALAPRILAT) 1.25 MG [Suspect]
     Indication: HYPERTENSION
     Dosage: (1.25 MG TOTAL INTRAVENOUS (NOT OTHERWISE SPECIFIED)
     Route: 042

REACTIONS (2)
  - BLOOD PRESSURE INCREASED [None]
  - DRUG EFFECT DECREASED [None]
